FAERS Safety Report 4684294-3 (Version None)
Quarter: 2005Q2

REPORT INFORMATION
  Report Type: 
  Country: None (occurrence: None)
  Receive Date: 20050531
  Receipt Date: 20040917
  Transmission Date: 20051028
  Serious: Yes (Other)
  Sender: FDA-Public Use
  Company Number: 200416753US

PATIENT
  Age: 36 Year
  Sex: Male
  Weight: 93.6 kg

DRUGS (2)
  1. LOVENOX [Suspect]
     Dosage: 100 MG BID SC
     Route: 058
     Dates: start: 20040827, end: 20040831
  2. WARFARIN SODIUM [Concomitant]

REACTIONS (3)
  - ALANINE AMINOTRANSFERASE INCREASED [None]
  - ASPARTATE AMINOTRANSFERASE INCREASED [None]
  - HEPATIC ENZYME INCREASED [None]
